FAERS Safety Report 7899685-7 (Version None)
Quarter: 2011Q4

REPORT INFORMATION
  Report Type: 
  Country: None (occurrence: None)
  Receive Date: 20111107
  Receipt Date: 20110918
  Transmission Date: 20120403
  Serious: No
  Sender: FDA-Public Use
  Company Number: US-AMGEN-USASP2011048122

PATIENT
  Sex: Female

DRUGS (1)
  1. ENBREL [Suspect]
     Indication: RHEUMATOID ARTHRITIS
     Dosage: 50 MG, QWK
     Dates: start: 20110204

REACTIONS (8)
  - SYNCOPE [None]
  - DRY MOUTH [None]
  - HEADACHE [None]
  - ASTHENIA [None]
  - DIZZINESS [None]
  - THIRST [None]
  - PARAESTHESIA [None]
  - WEIGHT INCREASED [None]
